FAERS Safety Report 21142966 (Version 1)
Quarter: 2022Q3

REPORT INFORMATION
  Report Type: Spontaneous
  Country: US (occurrence: None)
  Receive Date: 20220728
  Receipt Date: 20220728
  Transmission Date: 20221027
  Serious: No
  Sender: FDA-Public Use
  Company Number: None

PATIENT
  Age: 61 Year
  Sex: Female
  Weight: 99 kg

DRUGS (6)
  1. XIIDRA [Suspect]
     Active Substance: LIFITEGRAST
     Indication: Dry eye
     Dosage: OTHER QUANTITY : 1 DROP(S);?FREQUENCY : TWICE A DAY;?
     Route: 047
     Dates: start: 20220727, end: 20220727
  2. ADVAIR DISKUS [Concomitant]
     Active Substance: FLUTICASONE PROPIONATE\SALMETEROL XINAFOATE
  3. SPIRIVA [Concomitant]
     Active Substance: TIOTROPIUM BROMIDE MONOHYDRATE
  4. ALBUTEROL SULFATE [Concomitant]
     Active Substance: ALBUTEROL SULFATE
  5. ESTRADIOL [Concomitant]
     Active Substance: ESTRADIOL
  6. THEOPHYLLINE ANHYDROUS [Concomitant]
     Active Substance: THEOPHYLLINE ANHYDROUS

REACTIONS (4)
  - Eye irritation [None]
  - Eye discharge [None]
  - Vision blurred [None]
  - Taste disorder [None]

NARRATIVE: CASE EVENT DATE: 20220727
